FAERS Safety Report 8962599 (Version 1)
Quarter: 2012Q4

REPORT INFORMATION
  Report Type: 
  Country: US (occurrence: US)
  Receive Date: 20121213
  Receipt Date: 20121213
  Transmission Date: 20130627
  Serious: Yes (Hospitalization)
  Sender: FDA-Public Use
  Company Number: US-BAYER-2012-128000

PATIENT
  Sex: Male

DRUGS (1)
  1. BAYER ASPIRIN [Suspect]
     Indication: PASSED OUT
     Dosage: 1 DF, UNK
     Route: 048
     Dates: start: 20121201

REACTIONS (4)
  - Hospitalisation [None]
  - Off label use [None]
  - Expired drug administered [None]
  - Myocardial infarction [None]
